FAERS Safety Report 22320550 (Version 1)
Quarter: 2023Q2

REPORT INFORMATION
  Report Type: Spontaneous
  Country: FR (occurrence: FR)
  Receive Date: 20230515
  Receipt Date: 20230515
  Transmission Date: 20230722
  Serious: Yes (Life-Threatening, Hospitalization)
  Sender: FDA-Public Use
  Company Number: FR-NORDICGR-2023000834

PATIENT
  Age: 72 Year
  Sex: Male
  Weight: 88 kg

DRUGS (1)
  1. APROTININ [Suspect]
     Active Substance: APROTININ
     Indication: Aortic surgery
     Dosage: PROTOCOLE HALF-DOSE
     Route: 042
     Dates: start: 20230221, end: 20230221

REACTIONS (3)
  - Mesenteric artery thrombosis [Recovered/Resolved with Sequelae]
  - Product use in unapproved indication [Unknown]
  - Off label use [None]

NARRATIVE: CASE EVENT DATE: 20230221
